FAERS Safety Report 16318506 (Version 1)
Quarter: 2019Q2

REPORT INFORMATION
  Report Type: Spontaneous
  Country: ES (occurrence: ES)
  Receive Date: 20190516
  Receipt Date: 20190516
  Transmission Date: 20190711
  Serious: Yes (Death, Hospitalization)
  Sender: FDA-Public Use
  Company Number: ES-ROCHE-2318353

PATIENT
  Age: 67 Year
  Sex: Male

DRUGS (4)
  1. METILPREDNISOLONA [METHYLPREDNISOLONE] [Concomitant]
     Indication: RENAL TRANSPLANT
     Route: 042
     Dates: start: 20181127, end: 20181129
  2. METILPREDNISOLONA [METHYLPREDNISOLONE] [Concomitant]
     Indication: RENAL TRANSPLANT
     Route: 042
     Dates: start: 20181129, end: 20181202
  3. MYCOPHENOLATE MOFETIL. [Suspect]
     Active Substance: MYCOPHENOLATE MOFETIL
     Indication: RENAL TRANSPLANT
     Route: 048
     Dates: start: 20181127, end: 20181202
  4. TACROLIMUS. [Interacting]
     Active Substance: TACROLIMUS
     Indication: RENAL TRANSPLANT
     Route: 048
     Dates: start: 20181127, end: 20181202

REACTIONS (2)
  - Drug interaction [Fatal]
  - Klebsiella sepsis [Fatal]

NARRATIVE: CASE EVENT DATE: 20181201
